FAERS Safety Report 8669504 (Version 3)
Quarter: 2013Q1

REPORT INFORMATION
  Report Type: Spontaneous
  Country: TR (occurrence: TR)
  Receive Date: 20120718
  Receipt Date: 20130104
  Transmission Date: 20140127
  Serious: Yes (Other)
  Sender: FDA-Public Use
  Company Number: TR-BRISTOL-MYERS SQUIBB COMPANY-16750721

PATIENT
  Age: 11 Year
  Sex: Male

DRUGS (3)
  1. ABILIFY TABS 10 MG [Suspect]
     Indication: ATTENTION DEFICIT/HYPERACTIVITY DISORDER
  2. CONCERTA [Suspect]
     Indication: ATTENTION DEFICIT/HYPERACTIVITY DISORDER
  3. RISPERIDONE [Concomitant]

REACTIONS (4)
  - Pallor [Recovered/Resolved with Sequelae]
  - Dyspnoea [Recovered/Resolved with Sequelae]
  - Fatigue [Recovered/Resolved with Sequelae]
  - Jaundice [Recovered/Resolved with Sequelae]
